FAERS Safety Report 10404300 (Version 1)
Quarter: 2014Q1

REPORT INFORMATION
  Report Type: Spontaneous
  Country: US (occurrence: None)
  Receive Date: 20140214
  Receipt Date: 20140214
  Transmission Date: 20141002
  Serious: No
  Sender: FDA-Public Use
  Company Number: A-NJ2014-93751

PATIENT
  Age: 68 Year
  Sex: Female

DRUGS (19)
  1. OPSUMIT [Suspect]
     Indication: PULMONARY HYPERTENSION
     Route: 048
     Dates: start: 20131213
  2. CYMBALTA (DULOXETINE HYDROCHLORIDE) [Concomitant]
  3. LANTUS (INSULIN GLARGINE) [Concomitant]
  4. CEFTIN (CEFUROXIME AXETIL) [Concomitant]
  5. DELTASONE (PREDNISONE) [Concomitant]
  6. SYMBICORT (BUDESONIDE, FORMOTEROL FUMARATE) [Concomitant]
  7. DUONEB (IPRATROPIUM BROMIDE, SALBUTAMOL SULFATE) [Concomitant]
  8. PERCOCET (OXYCODONE HYDROCHLORIDE, OXYCODONE TEREPHTHALATE, PARACETAMOL) [Concomitant]
  9. DITROPAN XL (OXYBUTYNIN HYDROCHLORIDE) [Concomitant]
  10. ALLEGRA (FEXOFENADINE HYDROCHLORIDE) [Concomitant]
  11. NOVOLOG (INSULIN ASPART) [Concomitant]
  12. ZESTRIL (LISINOPRIL) [Concomitant]
  13. COMBIVENT (IPRATROPIUM BROMIDE, SALBUTAMOL SULFATE) [Concomitant]
  14. LASIX (FUROSEMIDE) [Concomitant]
  15. ZOCOR (SIMVASTATIN) [Concomitant]
  16. PROTONIX (PANTOPRAZOLE SODIUM SESQUIHYDRATE) [Concomitant]
  17. ASA (ACETYLSALICYLIC ACID) [Concomitant]
  18. XALATAN (LATANOPROST) [Concomitant]
  19. OXYGEN (OXYGEN) [Concomitant]

REACTIONS (6)
  - Dyspnoea [None]
  - Headache [None]
  - Oropharyngeal pain [None]
  - Nasal congestion [None]
  - Eye pain [None]
  - Nasopharyngitis [None]
